FAERS Safety Report 7574463-7 (Version None)
Quarter: 2011Q2

REPORT INFORMATION
  Report Type: 
  Country: None (occurrence: None)
  Receive Date: 20110627
  Receipt Date: 20110617
  Transmission Date: 20111010
  Serious: Yes (Hospitalization)
  Sender: FDA-Public Use
  Company Number: BR-ASTRAZENECA-2011SE37170

PATIENT
  Age: 51 Year
  Sex: Male
  Weight: 82 kg

DRUGS (5)
  1. SOMALGIN [Concomitant]
     Route: 048
     Dates: start: 20100501
  2. METOPROLOL SUCCINATE [Suspect]
     Indication: HYPERTENSION
     Route: 048
     Dates: start: 20100401
  3. LEXAPRO [Concomitant]
     Indication: ANXIETY
     Route: 048
     Dates: start: 20090101
  4. CRESTOR [Suspect]
     Indication: HYPERCHOLESTEROLAEMIA
     Route: 048
     Dates: start: 20100401
  5. UNKNOWN [Concomitant]
     Indication: SLEEP APNOEA SYNDROME
     Route: 048
     Dates: start: 20080101

REACTIONS (4)
  - BLOOD PRESSURE INADEQUATELY CONTROLLED [None]
  - CORONARY ARTERY OCCLUSION [None]
  - CORONARY REVASCULARISATION [None]
  - DRUG INEFFECTIVE [None]
